FAERS Safety Report 26104170 (Version 1)
Quarter: 2025Q4

REPORT INFORMATION
  Report Type: Spontaneous
  Country: EU (occurrence: EU)
  Receive Date: 20251130
  Receipt Date: 20251130
  Transmission Date: 20260117
  Serious: Yes (Hospitalization, Other)
  Sender: JOHNSON AND JOHNSON
  Company Number: EU-JNJFOC-20251171046

PATIENT
  Sex: Male

DRUGS (2)
  1. STELARA [Suspect]
     Active Substance: USTEKINUMAB
     Indication: Crohn^s disease
     Route: 058
     Dates: start: 202307
  2. STELARA [Suspect]
     Active Substance: USTEKINUMAB
     Indication: Spondylitis
     Route: 058
     Dates: start: 202407

REACTIONS (5)
  - Nephropathy [Recovering/Resolving]
  - Nephrotic syndrome [Recovering/Resolving]
  - General physical condition abnormal [Recovering/Resolving]
  - Purpura [Recovering/Resolving]
  - Off label use [Unknown]

NARRATIVE: CASE EVENT DATE: 20240701
